FAERS Safety Report 4619280-2 (Version None)
Quarter: 2005Q1

REPORT INFORMATION
  Report Type: 
  Country: None (occurrence: None)
  Receive Date: 20050318
  Receipt Date: 20050318
  Transmission Date: 20050727
  Serious: Yes (Hospitalization)
  Sender: FDA-Public Use
  Company Number: None

PATIENT
  Sex: Male
  Weight: 54.4316 kg

DRUGS (14)
  1. DILANTIN [Suspect]
     Indication: CONVULSION
     Dosage: 75 MG PO BID [PRIOR TO ADMISSION]
     Route: 048
  2. TYLENOL (CAPLET) [Concomitant]
  3. ROBITUSSIN DM [Concomitant]
  4. TIGAN [Concomitant]
  5. FLEET ENEMA [Concomitant]
  6. IMODIUM [Concomitant]
  7. MYLANTA [Concomitant]
  8. CALCIUM GLUBINATE [Concomitant]
  9. PEMOLINE [Concomitant]
  10. PRILOSEC [Concomitant]
  11. SENNA-S [Concomitant]
  12. DIAMOX [Concomitant]
  13. REGLAN [Concomitant]
  14. MOM [Concomitant]

REACTIONS (4)
  - ASTHENIA [None]
  - DRUG TOXICITY [None]
  - LETHARGY [None]
  - VOMITING [None]
